FAERS Safety Report 21124802 (Version 2)
Quarter: 2022Q3

REPORT INFORMATION
  Report Type: Spontaneous
  Country: US (occurrence: US)
  Receive Date: 20220725
  Receipt Date: 20220831
  Transmission Date: 20221027
  Serious: Yes (Other)
  Sender: FDA-Public Use
  Company Number: US-EVOFEM BIOSCIENCES, INC.-2022-EVO-US000087

PATIENT

DRUGS (2)
  1. PHEXXI [Suspect]
     Active Substance: CITRIC ACID MONOHYDRATE\LACTIC ACID, L-\POTASSIUM BITARTRATE
     Indication: Contraception
     Dosage: UNK
     Route: 067
     Dates: start: 2022
  2. PHEXXI [Suspect]
     Active Substance: CITRIC ACID MONOHYDRATE\LACTIC ACID, L-\POTASSIUM BITARTRATE
     Dosage: UNK
     Route: 067
     Dates: start: 202204

REACTIONS (4)
  - Retained products of conception [Recovered/Resolved]
  - Pregnancy [Recovered/Resolved]
  - Drug ineffective [Recovered/Resolved]
  - Product administration error [Unknown]

NARRATIVE: CASE EVENT DATE: 20220503
